FAERS Safety Report 7530660-8 (Version None)
Quarter: 2011Q2

REPORT INFORMATION
  Report Type: 
  Country: None (occurrence: None)
  Receive Date: 20110607
  Receipt Date: 20100729
  Transmission Date: 20111010
  Serious: Yes (Death, Other)
  Sender: FDA-Public Use
  Company Number: US-BAYER-201027604NA

PATIENT
  Age: 61 Year
  Sex: Male
  Weight: 78.636 kg

DRUGS (68)
  1. ENALAPRIL MALEATE [Concomitant]
  2. EPOGEN [Concomitant]
  3. CARDIAZEM [Concomitant]
  4. GLIMEPIRIDE [Concomitant]
  5. TIAZAC [Concomitant]
  6. OMNISCAN [Suspect]
     Indication: NUCLEAR MAGNETIC RESONANCE IMAGING
     Dosage: 60 ML OF GADOLINIUM AND APPROXIMATELY 3 ML OF IODINATED CONTRAST
     Route: 042
     Dates: start: 20041105, end: 20041105
  7. OMNISCAN [Suspect]
     Indication: ANGIOGRAM
  8. PHOSLO [Concomitant]
  9. ASPIRIN [Concomitant]
  10. LANTUS [Concomitant]
  11. DIGOXIN [Concomitant]
  12. SENOKOT [Concomitant]
  13. LABETALOL [Concomitant]
  14. TUSSIONEX [Concomitant]
  15. NASONEX [Concomitant]
  16. CORLOPAM [Concomitant]
  17. OMNISCAN [Suspect]
     Indication: ARTERIOGRAM RENAL
     Route: 042
     Dates: start: 20041104, end: 20041104
  18. ENALAPRIL MALEATE [Concomitant]
  19. FEXOFENADINE [Concomitant]
  20. HYOSCYAMINE [Concomitant]
  21. AZITHROMYCIN [Concomitant]
  22. COMPAZINE [Concomitant]
  23. XANAX [Concomitant]
  24. THIAMINE [Concomitant]
  25. MAGNEVIST [Suspect]
     Indication: ANGIOGRAM
     Route: 042
     Dates: start: 20070210, end: 20070210
  26. EPOETIN ALFA [Concomitant]
  27. HUMALOG [Concomitant]
  28. CLONIDINE [Concomitant]
  29. ZETIA [Concomitant]
  30. PROCRIT [Concomitant]
  31. COREG [Concomitant]
  32. HYDRALAZINE HCL [Concomitant]
  33. BIAXIN XL [Concomitant]
  34. CEPHALEXIN [Concomitant]
  35. ATACAND [Concomitant]
  36. TRAMADOL HCL [Concomitant]
  37. ATIVAN [Concomitant]
  38. INSULIN [Concomitant]
  39. CLONIDINE [Concomitant]
  40. MINOXIDIL [Concomitant]
  41. MINOXIDIL [Concomitant]
  42. PLAVIX [Concomitant]
  43. PRILOSEC [Concomitant]
  44. NEXIUM [Concomitant]
  45. BENZONATATE [Concomitant]
  46. HALDOL [Concomitant]
  47. MULTIVITAMIN PREPARATION + MINERAL SUPPLEMENT [Concomitant]
  48. NEPHRO-VITE [VITAMINS NOS] [Concomitant]
  49. NEPHROVITE [VIT C,VIT H,B5,B12,B9,B3,B6,B2,B1 HCL] [Concomitant]
  50. ALBUTEROL SULFATE AUTOHALER [Concomitant]
  51. COUMADIN [Concomitant]
  52. COMBIVENT [Concomitant]
  53. AVANDIA [Concomitant]
  54. MAGNEVIST [Suspect]
     Indication: NUCLEAR MAGNETIC RESONANCE IMAGING BRAIN
     Dosage: 17 ML, ONCE
     Route: 042
     Dates: start: 20070207, end: 20070207
  55. VASOTEC [Concomitant]
  56. NIFEREX [Concomitant]
  57. LEVAQUIN [Concomitant]
  58. AMOXICILLIN [Concomitant]
  59. CALCITRIOL [Concomitant]
  60. MUCOMYST [Concomitant]
  61. REGLAN [Concomitant]
  62. AMARYL [Concomitant]
  63. LASIX [Concomitant]
  64. TOPROL-XL [Concomitant]
  65. OXYCODONE HCL AND ACETAMINOPHEN [Concomitant]
  66. CATAPRES-TTS-1 [Concomitant]
  67. LORATADINE [Concomitant]
  68. FOLATE SODIUM [Concomitant]

REACTIONS (16)
  - NEPHROGENIC SYSTEMIC FIBROSIS [None]
  - SCAB [None]
  - SKIN HYPERPIGMENTATION [None]
  - SKIN HYPERTROPHY [None]
  - RASH [None]
  - DRY SKIN [None]
  - PAIN IN EXTREMITY [None]
  - SKIN ULCER [None]
  - SKIN EXFOLIATION [None]
  - MOBILITY DECREASED [None]
  - GAIT DISTURBANCE [None]
  - NODULE [None]
  - OEDEMA PERIPHERAL [None]
  - JOINT RANGE OF MOTION DECREASED [None]
  - SKIN FIBROSIS [None]
  - SKIN TIGHTNESS [None]
